FAERS Safety Report 5113682-6 (Version None)
Quarter: 2006Q3

REPORT INFORMATION
  Report Type: 
  Country: None (occurrence: None)
  Receive Date: 20060921
  Receipt Date: 20060921
  Transmission Date: 20061208
  Serious: Yes (Hospitalization)
  Sender: FDA-Public Use
  Company Number: None

PATIENT
  Age: 30 Year
  Sex: Male
  Weight: 83.9 kg

DRUGS (3)
  1. LITHIUM CARBONATE [Suspect]
     Indication: BIPOLAR DISORDER
     Dosage: 900 MG PO QD
     Route: 048
     Dates: start: 20060428, end: 20060528
  2. PHENYTOIN [Concomitant]
  3. MONTELUKAST [Concomitant]

REACTIONS (7)
  - ATTENTION-SEEKING BEHAVIOUR [None]
  - BRADYCARDIA [None]
  - DIZZINESS [None]
  - INTENTIONAL OVERDOSE [None]
  - NAUSEA [None]
  - VISUAL DISTURBANCE [None]
  - VOMITING [None]
